FAERS Safety Report 20193703 (Version 2)
Quarter: 2022Q2

REPORT INFORMATION
  Report Type: Spontaneous
  Country: CA (occurrence: CA)
  Receive Date: 20211216
  Receipt Date: 20220401
  Transmission Date: 20220720
  Serious: Yes (Other)
  Sender: FDA-Public Use
  Company Number: CA-SAMSUNG BIOEPIS-SB-2021-28389

PATIENT
  Age: 77 Year
  Sex: Male
  Weight: 94 kg

DRUGS (1)
  1. INFLIXIMAB [Suspect]
     Active Substance: INFLIXIMAB
     Indication: Ankylosing spondylitis
     Route: 042

REACTIONS (3)
  - Cataract [Unknown]
  - Intentional product use issue [Unknown]
  - Off label use [Unknown]
